FAERS Safety Report 20771382 (Version 1)
Quarter: 2022Q2

REPORT INFORMATION
  Report Type: Report from Study
  Country: IR (occurrence: IR)
  Receive Date: 20220429
  Receipt Date: 20220429
  Transmission Date: 20220721
  Serious: Yes (Hospitalization)
  Sender: FDA-Public Use
  Company Number: IR-NOVOPROD-911033

PATIENT
  Age: 64 Year
  Sex: Male
  Weight: 75 kg

DRUGS (1)
  1. INSULIN ASPART [Suspect]
     Active Substance: INSULIN ASPART
     Indication: Type 2 diabetes mellitus
     Dosage: 30 IU, BID (BREAKFAST 30 IU, DINNER 30 IU)
     Route: 058
     Dates: start: 20211013, end: 20220413

REACTIONS (3)
  - Oedema [Recovering/Resolving]
  - Diabetes mellitus inadequate control [Recovered/Resolved]
  - Diabetic foot [Recovered/Resolved]
